FAERS Safety Report 8427718-8 (Version None)
Quarter: 2012Q2

REPORT INFORMATION
  Report Type: 
  Country: None (occurrence: None)
  Receive Date: 20120611
  Receipt Date: 20120601
  Transmission Date: 20120825
  Serious: Yes (Other)
  Sender: FDA-Public Use
  Company Number: US-ASTRAZENECA-2007UW11315

PATIENT
  Age: 81 Year
  Sex: Female

DRUGS (3)
  1. ARIMIDEX [Suspect]
     Route: 048
  2. TAMOXIFEN CITRATE [Suspect]
     Route: 048
  3. NEXIUM [Suspect]
     Route: 048

REACTIONS (2)
  - BREAST CANCER [None]
  - HYPERSENSITIVITY [None]
